FAERS Safety Report 14518105 (Version 5)
Quarter: 2018Q1

REPORT INFORMATION
  Report Type: Spontaneous
  Country: US (occurrence: US)
  Receive Date: 20180212
  Receipt Date: 20180326
  Transmission Date: 20180509
  Serious: Yes (Other)
  Sender: FDA-Public Use
  Company Number: US-UNITED THERAPEUTICS-UNT-2018-000871

PATIENT
  Age: 61 Year
  Sex: Male
  Weight: 83.45 kg

DRUGS (5)
  1. REMODULIN [Suspect]
     Active Substance: TREPROSTINIL
     Indication: PULMONARY ARTERIAL HYPERTENSION
     Dosage: 0.018 ?G/KG, CONTINUING
     Route: 058
     Dates: start: 20180110
  2. OPSUMIT [Concomitant]
     Active Substance: MACITENTAN
     Indication: PRODUCT USED FOR UNKNOWN INDICATION
     Route: 065
  3. XARELTO [Concomitant]
     Active Substance: RIVAROXABAN
     Indication: PRODUCT USED FOR UNKNOWN INDICATION
     Route: 065
  4. REMODULIN [Suspect]
     Active Substance: TREPROSTINIL
     Dosage: 0.017 ?G/KG, CONTINUING
     Route: 058
  5. REMODULIN [Suspect]
     Active Substance: TREPROSTINIL
     Indication: PULMONARY HYPERTENSION
     Dosage: UNK
     Route: 058

REACTIONS (13)
  - Pulmonary embolism [Unknown]
  - Pulmonary pain [Unknown]
  - Headache [Unknown]
  - Infusion site pain [Unknown]
  - Infusion site pruritus [Unknown]
  - Arthralgia [Unknown]
  - Nausea [Unknown]
  - Chest pain [Unknown]
  - Device dislocation [Unknown]
  - Diarrhoea [Unknown]
  - Depressed mood [Unknown]
  - Infusion site erythema [Unknown]
  - Pain [Unknown]

NARRATIVE: CASE EVENT DATE: 201801
